FAERS Safety Report 8003989-7 (Version None)
Quarter: 2011Q4

REPORT INFORMATION
  Report Type: 
  Country: None (occurrence: None)
  Receive Date: 20111222
  Receipt Date: 20111207
  Transmission Date: 20120403
  Serious: Yes (Hospitalization)
  Sender: FDA-Public Use
  Company Number: US-CELGENEUS-163-21880-11113835

PATIENT
  Age: 61 Year
  Sex: Male
  Weight: 82.446 kg

DRUGS (37)
  1. THERA-M WITH IRON [Concomitant]
     Dosage: 1 TABLET
     Route: 048
     Dates: start: 20111115, end: 20111120
  2. SODIUM CHLORIDE WITH POTASSIUM CHLORIDE [Concomitant]
     Dosage: 1000ML/20MEQ - 125 ML/HR
     Route: 041
     Dates: start: 20111115, end: 20111116
  3. SODIUM CHLORIDE [Concomitant]
     Dosage: 100 MILLIGRAM
     Dates: start: 20111115
  4. LACTATED RINGER'S [Concomitant]
     Dosage: 50ML/HR
     Route: 041
     Dates: start: 20111115
  5. PROMETHAZINE [Concomitant]
     Dosage: 12.5 MILLIGRAM
     Route: 041
     Dates: start: 20111115, end: 20111115
  6. SIMVASTATIN [Concomitant]
     Dosage: 25 MILLIGRAM
     Route: 048
     Dates: start: 20111115, end: 20111120
  7. DOCUSATE SODIUM [Concomitant]
     Dosage: 100 MILLIGRAM
     Route: 048
     Dates: start: 20111115, end: 20111120
  8. BISACODYL [Concomitant]
     Dosage: 10 MILLIGRAM
     Route: 054
     Dates: start: 20111118, end: 20111120
  9. LORAZEPAM [Concomitant]
     Dosage: 2MG/MIN
     Route: 041
     Dates: start: 20111115, end: 20111120
  10. HYDROMORPHONE HCL [Concomitant]
     Route: 041
     Dates: start: 20111116, end: 20111117
  11. HYDROMORPHONE HCL [Concomitant]
     Route: 041
     Dates: start: 20111117, end: 20111119
  12. FAMOTIDINE [Concomitant]
     Dosage: 20 MILLIGRAM
     Route: 048
     Dates: start: 20111117, end: 20111120
  13. FENTANYL CITRATE [Concomitant]
     Dosage: 50 MICROGRAM
     Route: 041
     Dates: start: 20111115, end: 20111115
  14. CEFAZOLIN [Concomitant]
     Dosage: 2 GRAM
     Route: 041
     Dates: start: 20111115, end: 20111115
  15. HYDROMORPHONE HCL [Concomitant]
     Route: 041
     Dates: start: 20111115, end: 20111116
  16. HYDROMORPHONE HCL [Concomitant]
     Dosage: .5 MILLIGRAM
     Route: 041
     Dates: start: 20111119, end: 20111120
  17. FAMOTIDINE [Concomitant]
     Dosage: 20 MILLIGRAM
     Route: 048
     Dates: start: 20111116
  18. FLUMAZENIL [Concomitant]
     Dosage: .2 MILLIGRAM
     Route: 041
     Dates: start: 20111115, end: 20111115
  19. SERTRALINE HYDROCHLORIDE [Concomitant]
     Dosage: 25 MILLIGRAM
     Route: 048
     Dates: start: 20111116, end: 20111120
  20. MAGNESIUM HYDROXIDE TAB [Concomitant]
     Dosage: 30 MILLILITER
     Route: 048
     Dates: start: 20111115, end: 20111120
  21. HEPARIN [Concomitant]
     Dosage: 5000 UNITS
     Route: 058
     Dates: start: 20111118, end: 20111120
  22. REVLIMID [Suspect]
     Indication: MULTIPLE MYELOMA
     Dosage: 25 MILLIGRAM
     Route: 048
     Dates: start: 20110704, end: 20111020
  23. FAMOTIDINE [Concomitant]
     Dosage: 20 MILLIGRAM
     Route: 048
     Dates: start: 20111115, end: 20111115
  24. LACTATED RINGER'S [Concomitant]
     Dosage: 100 ML/HR
     Route: 041
     Dates: start: 20111115, end: 20111115
  25. ACETAMINOPHEN [Concomitant]
     Dosage: 1000 MILLIGRAM
     Route: 041
     Dates: start: 20111115, end: 20111115
  26. ACETAMINOPHEN [Concomitant]
     Dosage: 650 MILLIGRAM
     Route: 048
     Dates: start: 20111115, end: 20111120
  27. DIPHENHYDRAMINE HCL [Concomitant]
     Dosage: 12.5 MILLIGRAM
     Route: 041
     Dates: start: 20111115, end: 20111120
  28. BISACODYL [Concomitant]
     Dosage: 5 MILLIGRAM
     Route: 048
     Dates: start: 20111115, end: 20111120
  29. LIDOCAINE [Concomitant]
     Dosage: .1 MILLILITER
     Route: 058
     Dates: start: 20111115, end: 20111115
  30. NALOXONE [Concomitant]
     Dosage: .1 MILLIGRAM
     Route: 041
     Dates: start: 20111115, end: 20111115
  31. OPIUM-BELLADONA [Concomitant]
     Dosage: 1
     Route: 054
     Dates: start: 20111115, end: 20111120
  32. ONDANSETRON [Concomitant]
     Dosage: 4 TO 7MG OVER 30 SECONDS
     Route: 041
     Dates: start: 20111115, end: 20111120
  33. HYDROMORPHONE HCL [Concomitant]
     Dosage: .5 MILLIGRAM
     Route: 041
     Dates: start: 20111115, end: 20111115
  34. MIDAZOLAM [Concomitant]
     Dosage: 2 MILLIGRAM
     Route: 041
     Dates: start: 20111115, end: 20111115
  35. NALOXONE [Concomitant]
     Dosage: .4 MILLIGRAM
     Route: 041
     Dates: start: 20111115, end: 20111120
  36. TERAZOSIN HCL [Concomitant]
     Dosage: 5 MILLIGRAM
     Route: 048
     Dates: start: 20111115, end: 20111119
  37. SODIUM CHLORIDE WITH POTASSIUM CHLORIDE [Concomitant]
     Dosage: 1000ML/20MEQ - 125 ML/HR
     Route: 041
     Dates: start: 20111116, end: 20111119

REACTIONS (1)
  - TRANSITIONAL CELL CARCINOMA [None]
